FAERS Safety Report 7725365-4 (Version None)
Quarter: 2011Q3

REPORT INFORMATION
  Report Type: 
  Country: None (occurrence: None)
  Receive Date: 20110902
  Receipt Date: 20110824
  Transmission Date: 20111222
  Serious: Yes (Other)
  Sender: FDA-Public Use
  Company Number: JP-JNJFOC-20110811991

PATIENT
  Age: 70 Year
  Sex: Male

DRUGS (5)
  1. LEVOFLOXACIN [Suspect]
     Indication: INFECTION
     Route: 065
  2. MARZULENE [Concomitant]
     Route: 065
  3. ACETAMINOPHEN [Concomitant]
     Route: 065
  4. NORVASC [Concomitant]
     Route: 065
  5. DIOVAN [Concomitant]
     Route: 065

REACTIONS (1)
  - LOSS OF CONSCIOUSNESS [None]
